FAERS Safety Report 4939328-5 (Version None)
Quarter: 2006Q1

REPORT INFORMATION
  Report Type: 
  Country: None (occurrence: None)
  Receive Date: 20060306
  Receipt Date: 20060217
  Transmission Date: 20060701
  Serious: Yes (Hospitalization, Other)
  Sender: FDA-Public Use
  Company Number: RENA-11685

PATIENT
  Age: 52 Year
  Sex: Male
  Weight: 48.5 kg

DRUGS (8)
  1. RENAGEL [Suspect]
     Indication: HYPERPHOSPHATAEMIA
     Dosage: 0.75 G TID PO
     Route: 048
     Dates: start: 20040514, end: 20050216
  2. RENAGEL [Suspect]
     Indication: HYPERPHOSPHATAEMIA
     Dosage: 0.5 G TID PO
     Route: 048
     Dates: start: 20040412, end: 20040513
  3. PURSENNID [Concomitant]
  4. CALBLOCK [Concomitant]
  5. GASTER D (FAMOTIDINE0 [Concomitant]
  6. LASIX [Concomitant]
  7. ALFAFLOR [Concomitant]
  8. LAMISIL [Concomitant]

REACTIONS (3)
  - CONDITION AGGRAVATED [None]
  - CONSTIPATION [None]
  - INTESTINAL OBSTRUCTION [None]
